FAERS Safety Report 19658668 (Version 3)
Quarter: 2021Q3

REPORT INFORMATION
  Report Type: Report from Study
  Country: US (occurrence: US)
  Receive Date: 20210804
  Receipt Date: 20210930
  Transmission Date: 20211014
  Serious: Yes (Hospitalization)
  Sender: FDA-Public Use
  Company Number: US-EXELIXIS-XL18421042857

PATIENT
  Age: 61 Year
  Sex: Male
  Weight: 69.39 kg

DRUGS (11)
  1. ATEZOLIZUMAB. [Suspect]
     Active Substance: ATEZOLIZUMAB
     Indication: THYROID CANCER
     Dosage: 1200 MG, Q3WEEKS
     Route: 042
     Dates: start: 20200729, end: 20210729
  2. IMODIUM [Concomitant]
     Active Substance: LOPERAMIDE HYDROCHLORIDE
  3. VITAMIN D3 [Concomitant]
     Active Substance: CHOLECALCIFEROL
  4. K?DUR [Concomitant]
     Active Substance: POTASSIUM CHLORIDE
  5. XL184 [Suspect]
     Active Substance: CABOZANTINIB
     Indication: THYROID CANCER
     Dosage: 40 MG, QD
     Route: 048
     Dates: start: 20200729, end: 20210729
  6. XL184 [Suspect]
     Active Substance: CABOZANTINIB
     Dosage: 20MG,QD
     Route: 048
     Dates: start: 20210811
  7. KEPPRA [Concomitant]
     Active Substance: LEVETIRACETAM
  8. SYNTHROID [Concomitant]
     Active Substance: LEVOTHYROXINE SODIUM
  9. FLOMAX [Concomitant]
     Active Substance: TAMSULOSIN HYDROCHLORIDE
  10. LIORESAL [Concomitant]
     Active Substance: BACLOFEN
  11. DELTASONE [Concomitant]
     Active Substance: PREDNISONE

REACTIONS (1)
  - Transaminases increased [Not Recovered/Not Resolved]

NARRATIVE: CASE EVENT DATE: 20210729
